FAERS Safety Report 21552385 (Version 1)
Quarter: 2022Q4

REPORT INFORMATION
  Report Type: Other
  Country: CZ (occurrence: CZ)
  Receive Date: 20221104
  Receipt Date: 20221104
  Transmission Date: 20230113
  Serious: Yes (Life-Threatening, Hospitalization, Other)
  Sender: FDA-Public Use
  Company Number: None

PATIENT
  Sex: Male

DRUGS (2)
  1. ELIGARD [Suspect]
     Active Substance: LEUPROLIDE ACETATE
     Indication: Prostate cancer
     Dosage: 22.5 MILLIGRAM, Q 3 MONTH
     Route: 058
     Dates: start: 20221020, end: 20221020
  2. METAMIZOLE SODIUM\PITOFENONE HYDROCHLORIDE [Concomitant]
     Active Substance: METAMIZOLE SODIUM\PITOFENONE HYDROCHLORIDE
     Indication: Pain
     Route: 048
     Dates: end: 20221020

REACTIONS (7)
  - Loss of consciousness [Recovered/Resolved]
  - Retching [Recovered/Resolved]
  - Hypersensitivity [Recovered/Resolved]
  - Urticaria [Recovered/Resolved]
  - Vomiting [Recovered/Resolved]
  - Hypotension [Recovered/Resolved]
  - Pruritus [Recovered/Resolved]

NARRATIVE: CASE EVENT DATE: 20221020
